FAERS Safety Report 8294453-9 (Version None)
Quarter: 2012Q2

REPORT INFORMATION
  Report Type: 
  Country: None (occurrence: None)
  Receive Date: 20120418
  Receipt Date: 20120412
  Transmission Date: 20120825
  Serious: Yes (Hospitalization, Other)
  Sender: FDA-Public Use
  Company Number: PHHY2011FR098853

PATIENT
  Age: 52 Year
  Sex: Female
  Weight: 67.6 kg

DRUGS (10)
  1. METFORMIN HYDROCHLORIDE [Suspect]
     Indication: TYPE 2 DIABETES MELLITUS
     Dosage: 1 DF, BID (1000 MET AND 50 MG VILDA)
     Route: 048
     Dates: start: 20100708, end: 20110907
  2. KETOPROFEN [Suspect]
     Dosage: UNK
  3. BISOPROLOL FUMARATE [Concomitant]
     Dosage: 2.5 MG
  4. ACARBOSE [Suspect]
     Indication: DIABETES MELLITUS
     Dosage: 1 DF, TID
     Dates: start: 20110524, end: 20110907
  5. PERINDOPRIL ERBUMINE [Concomitant]
     Dosage: 10 MG
  6. SIMVASTATIN [Suspect]
     Indication: DIABETIC DYSLIPIDAEMIA
     Dosage: UNK
     Dates: end: 20110907
  7. VALPROIC ACID [Suspect]
     Indication: ANXIETY
     Dosage: UNK
     Route: 048
     Dates: end: 20110907
  8. EFFEXOR [Concomitant]
     Dosage: 75 MG
  9. LANSOPRAZOLE [Concomitant]
     Dosage: 15 MG
  10. ASPIRIN [Concomitant]
     Dosage: 75 MG

REACTIONS (4)
  - TRANSAMINASES INCREASED [None]
  - DIABETES MELLITUS INADEQUATE CONTROL [None]
  - CYTOLYTIC HEPATITIS [None]
  - HYPERSENSITIVITY [None]
